FAERS Safety Report 19366629 (Version 5)
Quarter: 2021Q3

REPORT INFORMATION
  Report Type: Spontaneous
  Country: GB (occurrence: GB)
  Receive Date: 20210603
  Receipt Date: 20210920
  Transmission Date: 20211014
  Serious: Yes (Hospitalization)
  Sender: FDA-Public Use
  Company Number: GB-ACCORD-226722

PATIENT
  Age: 55 Year
  Sex: Female
  Weight: 78.8 kg

DRUGS (22)
  1. MOSENUTUZUMAB [Suspect]
     Active Substance: MOSUNETUZUMAB
     Indication: FOLLICULAR LYMPHOMA
     Dosage: ON 29/SEP/2020 AT 10 26 TO 14 25, HE RECEIVED LAST DOSE OF MOSUNETUZUMAB 1 MG PRIOR TO AE/SAE (ADVER
     Route: 042
     Dates: start: 20200929
  2. MAGNASPARTATE [Concomitant]
     Indication: BLOOD MAGNESIUM DECREASED
     Route: 048
     Dates: start: 20201031, end: 20201102
  3. PARACETAMOL [Concomitant]
     Active Substance: ACETAMINOPHEN
     Indication: PREMEDICATION
     Route: 048
     Dates: start: 20201229, end: 20201229
  4. ACICLOVIR [Concomitant]
     Active Substance: ACYCLOVIR
     Route: 048
     Dates: start: 20200929
  5. SULFAMETHOXAZOLE/TRIMETHOPRIM [Concomitant]
     Active Substance: SULFAMETHOXAZOLE\TRIMETHOPRIM
     Route: 048
     Dates: start: 20200929
  6. LANSOPRAZOLE. [Concomitant]
     Active Substance: LANSOPRAZOLE
     Indication: GASTROINTESTINAL DISORDER PROPHYLAXIS
     Route: 048
     Dates: start: 20200924, end: 20200928
  7. NIVESTIM [Concomitant]
     Active Substance: FILGRASTIM
     Indication: NEUTROPENIA
     Route: 058
     Dates: start: 20210113, end: 20210119
  8. OMEPRAZOLE. [Concomitant]
     Active Substance: OMEPRAZOLE
     Dosage: 20 MG, QD
     Route: 048
     Dates: start: 20200930
  9. SODIUM CHLORIDE. [Concomitant]
     Active Substance: SODIUM CHLORIDE
     Indication: HYPOTENSION
     Route: 042
     Dates: start: 20201019, end: 20201019
  10. ALLOPURINOL. [Suspect]
     Active Substance: ALLOPURINOL
     Indication: FOLLICULAR LYMPHOMA
     Route: 048
     Dates: start: 20200924, end: 20201005
  11. AMITRIPTYLINE [Concomitant]
     Active Substance: AMITRIPTYLINE
     Indication: NEURALGIA
     Route: 048
     Dates: start: 2010
  12. DEXAMETHASONE. [Concomitant]
     Active Substance: DEXAMETHASONE
     Route: 042
     Dates: start: 20201020, end: 20201020
  13. ENOXAPARIN [Concomitant]
     Active Substance: ENOXAPARIN
     Dosage: VTE PROPHYLAXIS
     Route: 058
     Dates: start: 20201027, end: 20201109
  14. LISINOPRIL. [Concomitant]
     Active Substance: LISINOPRIL
     Indication: HYPERTENSION
     Route: 048
     Dates: start: 2012, end: 20201020
  15. PREDNISOLONE. [Concomitant]
     Active Substance: PREDNISOLONE
     Indication: LYMPHOMA
     Dosage: 100 MG, QD
     Route: 048
     Dates: start: 20200924, end: 20200928
  16. TAZOCIN [Concomitant]
     Active Substance: PIPERACILLIN SODIUM\TAZOBACTAM SODIUM
     Indication: SEPSIS
     Route: 042
     Dates: start: 20201004, end: 20201009
  17. TOPIRAMATE. [Concomitant]
     Active Substance: TOPIRAMATE
     Indication: MIGRAINE
     Route: 048
     Dates: start: 2005
  18. NYSTATIN. [Concomitant]
     Active Substance: NYSTATIN
     Indication: ORAL CANDIDIASIS
     Route: 048
     Dates: start: 20201029, end: 20201105
  19. LENALIDOMIDE [Suspect]
     Active Substance: LENALIDOMIDE
     Indication: FOLLICULAR LYMPHOMA
     Dosage: DATE OF MOST RECENT DOSE OF LENALIDOMIDE OF 20 MG PRIOR TO SAE ALLERGIC REACTION: 13/JAN/2021.?DATE
     Route: 048
     Dates: start: 20201028, end: 20201118
  20. CHLORPHENAMINE/CHLORPHENAMINE MALEATE/CHLORPHENAMINE RESINATE/CHLORPHENAMINE TANNATE [Concomitant]
     Active Substance: CHLORPHENIRAMINE
     Indication: PRURITUS
     Route: 048
     Dates: start: 20201028, end: 20201028
  21. AMOXICILLIN/CLAVULANATE POTASSIUM [Concomitant]
     Active Substance: AMOXICILLIN\CLAVULANATE POTASSIUM
     Indication: SEPSIS
     Route: 048
     Dates: start: 20201001, end: 20201005
  22. TRIMETHOPRIM. [Concomitant]
     Active Substance: TRIMETHOPRIM
     Indication: HYPERSENSITIVITY

REACTIONS (4)
  - Cytokine release syndrome [Recovered/Resolved]
  - Hypersensitivity [Recovered/Resolved]
  - Rash maculo-papular [Recovered/Resolved]
  - Off label use [Unknown]

NARRATIVE: CASE EVENT DATE: 20200929
